FAERS Safety Report 9862725 (Version 3)
Quarter: 2023Q1

REPORT INFORMATION
  Report Type: Spontaneous
  Country: US (occurrence: US)
  Receive Date: 20140203
  Receipt Date: 20230106
  Transmission Date: 20230417
  Serious: Yes (Death, Other)
  Sender: FDA-Public Use
  Company Number: CHPA2014US001805

PATIENT
  Age: 18 Year
  Sex: Male

DRUGS (14)
  1. DIPHENHYDRAMINE [Suspect]
     Active Substance: DIPHENHYDRAMINE
     Dosage: UNK
     Route: 065
  2. DEXTROMETHORPHAN HYDROBROMIDE [Suspect]
     Active Substance: DEXTROMETHORPHAN HYDROBROMIDE
     Dosage: UNK
     Route: 065
  3. ACETAMINOPHEN [Suspect]
     Active Substance: ACETAMINOPHEN
     Dosage: UNK
     Route: 065
  4. DIACETYLMORPHINE HYDROCHLORIDE [Suspect]
     Active Substance: DIACETYLMORPHINE HYDROCHLORIDE
     Route: 065
  5. DIAZEPAM [Suspect]
     Active Substance: DIAZEPAM
     Dosage: UNK
     Route: 065
  6. CITALOPRAM [Suspect]
     Active Substance: CITALOPRAM HYDROBROMIDE
     Dosage: UNK
     Route: 065
  7. PAROXETINE [Suspect]
     Active Substance: PAROXETINE
     Dosage: UNK
     Route: 065
  8. HYDROCODONE [Suspect]
     Active Substance: HYDROCODONE
     Dosage: UNK
     Route: 065
  9. DOXEPIN [Suspect]
     Active Substance: DOXEPIN
     Dosage: UNK
     Route: 065
  10. CODEINE [Suspect]
     Active Substance: CODEINE
     Dosage: UNK
     Route: 065
  11. ALCOHOL [Suspect]
     Active Substance: ALCOHOL
     Dosage: UNK
     Route: 065
  12. DIPHENHYDRAMINE HYDROCHLORIDE [Suspect]
     Active Substance: DIPHENHYDRAMINE HYDROCHLORIDE
     Indication: Product used for unknown indication
     Dosage: UNK
     Route: 065
  13. PAROXETINE [Suspect]
     Active Substance: PAROXETINE
     Indication: Product used for unknown indication
     Dosage: UNK
     Route: 065
  14. HEROIN [Suspect]
     Active Substance: DIAMORPHINE
     Indication: Product used for unknown indication
     Dosage: UNK

REACTIONS (2)
  - Intentional product misuse [Fatal]
  - Drug abuse [Fatal]

NARRATIVE: CASE EVENT DATE: 20120101
